FAERS Safety Report 5935541-9 (Version None)
Quarter: 2008Q4

REPORT INFORMATION
  Report Type: 
  Country: None (occurrence: None)
  Receive Date: 20081030
  Receipt Date: 20080923
  Transmission Date: 20090506
  Serious: No
  Sender: FDA-Public Use
  Company Number: US-BAYER-200813903BCC

PATIENT
  Age: 51 Year
  Sex: Male
  Weight: 100 kg

DRUGS (2)
  1. ALEVE D SINUS + HEADACHE CAPLETS [Suspect]
     Indication: NASAL CONGESTION
     Dosage: TOTAL DAILY DOSE: 1 DF  UNIT DOSE: 1 DF
     Route: 048
     Dates: start: 20080922
  2. ZOLPIDEM [Concomitant]

REACTIONS (1)
  - NASAL CONGESTION [None]
